FAERS Safety Report 4780422-X (Version None)
Quarter: 2005Q3

REPORT INFORMATION
  Report Type: 
  Country: None (occurrence: None)
  Receive Date: 20050927
  Receipt Date: 20050706
  Transmission Date: 20060218
  Serious: Yes (Life-Threatening, Hospitalization)
  Sender: FDA-Public Use
  Company Number: FR-NOVOPROD-245352

PATIENT
  Age: 34 Year
  Sex: Male

DRUGS (15)
  1. NOVORAPID FLEXPEN [Suspect]
     Indication: DIABETES MELLITUS
     Dosage: 36 IU, UNK
     Dates: start: 20050305
  2. LANTUS [Concomitant]
     Dosage: 30 IU, BEDTIME
     Route: 058
     Dates: start: 20050305, end: 20050428
  3. MODECATE ^SANOFI WINTHROP^ [Concomitant]
     Indication: PSYCHOTIC DISORDER
     Dosage: 75 MG, QD
     Route: 030
  4. XANAX [Concomitant]
     Dosage: 2 TAB, QD
     Route: 048
  5. TERCIAN [Concomitant]
     Indication: PSYCHOTIC DISORDER
     Dosage: 100 MG, UNK
     Route: 048
  6. ROHYPNOL [Concomitant]
     Dosage: 1 TAB, QD
  7. CITALOPRAM HYDROBROMIDE [Concomitant]
     Dosage: 3 DAILY PER OS
  8. PHENOBARBITAL SRT [Concomitant]
     Dosage: 1 BEDTIME
  9. CLONAZEPAM [Concomitant]
     Dosage: 1 MG, 3 DAY
  10. CATAPRES [Concomitant]
     Dosage: 3 PER DAY
  11. MYOLASTAN [Concomitant]
  12. HALDOL [Concomitant]
     Dosage: 30 DROPS THREE TIMES A DAY
  13. DI-HYDAN [Concomitant]
  14. UMULINE PROFIL [Concomitant]
     Dosage: 22 UNIT MORN. AND 24 BEDTIME
  15. ROHYPNOL [Concomitant]

REACTIONS (6)
  - BITE [None]
  - CEREBRAL ISCHAEMIA [None]
  - COMA [None]
  - EXTENSOR PLANTAR RESPONSE [None]
  - HYPERTONIA [None]
  - MYDRIASIS [None]
